FAERS Safety Report 17276797 (Version 2)
Quarter: 2020Q2

REPORT INFORMATION
  Report Type: Spontaneous
  Country: US (occurrence: US)
  Receive Date: 20200116
  Receipt Date: 20200401
  Transmission Date: 20200713
  Serious: No
  Sender: FDA-Public Use
  Company Number: US-PFIZER INC-2020020652

PATIENT
  Age: 74 Year
  Sex: Female
  Weight: 70.3 kg

DRUGS (1)
  1. XELJANZ [Suspect]
     Active Substance: TOFACITINIB CITRATE
     Indication: ARTHRITIS
     Dosage: 5 MG, 2X/DAY

REACTIONS (3)
  - Product use in unapproved indication [Unknown]
  - Memory impairment [Recovered/Resolved]
  - Off label use [Unknown]
